FAERS Safety Report 6415590-7 (Version None)
Quarter: 2009Q4

REPORT INFORMATION
  Report Type: 
  Country: None (occurrence: None)
  Receive Date: 20091027
  Receipt Date: 20091019
  Transmission Date: 20100525
  Serious: Yes (Other)
  Sender: FDA-Public Use
  Company Number: EC-ROCHE-660755

PATIENT
  Age: 73 Year
  Sex: Female

DRUGS (3)
  1. BONIVA [Suspect]
     Indication: OSTEOPOROSIS
     Dosage: DRUG NAME:  IBANDRONIC ACID (BONVIVA).
     Route: 048
     Dates: start: 20080101
  2. NPH INSULIN [Concomitant]
     Dosage: FREQUENCY: ONCE IN THE MORNING.
     Route: 058
  3. NPH INSULIN [Concomitant]
     Dosage: FREQUENCY: ONCE IN THE EVENING.
     Route: 058

REACTIONS (2)
  - FEMUR FRACTURE [None]
  - SYNCOPE [None]
